FAERS Safety Report 6756944-9 (Version None)
Quarter: 2010Q2

REPORT INFORMATION
  Report Type: 
  Country: None (occurrence: None)
  Receive Date: 20100604
  Receipt Date: 20100524
  Transmission Date: 20101027
  Serious: Yes (Hospitalization)
  Sender: FDA-Public Use
  Company Number: AE-WATSON-2010-07132

PATIENT
  Age: 14 Year
  Sex: Male

DRUGS (3)
  1. CARBOPLATIN [Suspect]
     Indication: MEDULLOBLASTOMA
     Dosage: 560 MG/MM ON DAY 1
  2. VINCRISTINE [Suspect]
     Indication: MEDULLOBLASTOMA
     Dosage: 1.5 MG/MM PER DOSE FO SIX DOSES
  3. CYCLOPHOSPHAMIDE [Suspect]
     Indication: MEDULLOBLASTOMA
     Dosage: 1000 MG/MM ON DAY 2 AND 3

REACTIONS (1)
  - VENOOCCLUSIVE LIVER DISEASE [None]
